FAERS Safety Report 19351607 (Version 2)
Quarter: 2021Q3

REPORT INFORMATION
  Report Type: Report from Study
  Country: CN (occurrence: CN)
  Receive Date: 20210531
  Receipt Date: 20210713
  Transmission Date: 20211014
  Serious: Yes (Hospitalization)
  Sender: FDA-Public Use
  Company Number: CN-KYOWAKIRIN-2021BKK009164

PATIENT

DRUGS (6)
  1. GRANISETRON [Suspect]
     Active Substance: GRANISETRON
     Indication: VOMITING
     Dosage: 1 DF, 1X/WEEK
     Route: 003
     Dates: start: 20210502, end: 20210506
  2. PYROTINIB MALEATE. [Suspect]
     Active Substance: PYROTINIB MALEATE
     Indication: BREAST CANCER METASTATIC
     Dosage: 400 MG, QD
     Route: 048
     Dates: start: 20210426, end: 20210505
  3. CAPECITABINE. [Suspect]
     Active Substance: CAPECITABINE
     Indication: BREAST CANCER METASTATIC
     Dosage: 1.5G, BID FROM D1 TO D14
     Route: 048
     Dates: start: 20210426, end: 20210505
  4. PYROTINIB MALEATE. [Suspect]
     Active Substance: PYROTINIB MALEATE
     Dosage: 400 MG, QD
     Route: 048
     Dates: start: 2021
  5. GRANISETRON [Suspect]
     Active Substance: GRANISETRON
     Indication: NAUSEA
     Dosage: 1 DF, 1X/WEEK
     Route: 003
     Dates: start: 20210425, end: 20210501
  6. CAPECITABINE. [Suspect]
     Active Substance: CAPECITABINE
     Dosage: 1.5G, BID FROM D1 TO D14
     Route: 048
     Dates: start: 2021

REACTIONS (2)
  - Vomiting [Recovered/Resolved]
  - Nausea [Recovered/Resolved]

NARRATIVE: CASE EVENT DATE: 20210504
